FAERS Safety Report 16104041 (Version 1)
Quarter: 2019Q1

REPORT INFORMATION
  Report Type: Spontaneous
  Country: US (occurrence: US)
  Receive Date: 20190322
  Receipt Date: 20190322
  Transmission Date: 20190418
  Serious: No
  Sender: FDA-Public Use
  Company Number: US-BIOGEN-2019BI00687117

PATIENT
  Sex: Male

DRUGS (8)
  1. TECFIDERA [Suspect]
     Active Substance: DIMETHYL FUMARATE
     Indication: MULTIPLE SCLEROSIS
     Route: 050
  2. AMITRIPTYLINE [Concomitant]
     Active Substance: AMITRIPTYLINE
     Route: 050
  3. VERAPAMIL [Concomitant]
     Active Substance: VERAPAMIL HYDROCHLORIDE
     Route: 050
  4. MELOXICAM. [Concomitant]
     Active Substance: MELOXICAM
     Route: 050
  5. PREDNISONE. [Concomitant]
     Active Substance: PREDNISONE
     Route: 050
  6. ROPINIROLE. [Concomitant]
     Active Substance: ROPINIROLE
     Route: 050
  7. BACLOFEN. [Concomitant]
     Active Substance: BACLOFEN
     Route: 050
  8. BUSPIRONE [Concomitant]
     Active Substance: BUSPIRONE HYDROCHLORIDE
     Route: 050

REACTIONS (2)
  - Fall [Recovered/Resolved]
  - Flushing [Not Recovered/Not Resolved]
